FAERS Safety Report 5660290-4 (Version None)
Quarter: 2008Q1

REPORT INFORMATION
  Report Type: 
  Country: None (occurrence: None)
  Receive Date: 20080213
  Receipt Date: 20070919
  Transmission Date: 20080703
  Serious: Yes (Other)
  Sender: FDA-Public Use
  Company Number: 2007-04288

PATIENT
  Age: 48 Year
  Sex: Female

DRUGS (2)
  1. ALORA [Suspect]
     Indication: HORMONE REPLACEMENT THERAPY
     Dosage: 1 PATCH, 2/WEEK, TRANSDERMAL ; 1 PATCH, 2/WEEK, TRANSDERMAL
     Route: 062
     Dates: start: 20040701, end: 20070820
  2. ALORA [Suspect]
     Indication: HORMONE REPLACEMENT THERAPY
     Dosage: 1 PATCH, 2/WEEK, TRANSDERMAL ; 1 PATCH, 2/WEEK, TRANSDERMAL
     Route: 062
     Dates: start: 20070701

REACTIONS (2)
  - DEEP VEIN THROMBOSIS [None]
  - OEDEMA PERIPHERAL [None]
